FAERS Safety Report 5503554-7 (Version None)
Quarter: 2007Q4

REPORT INFORMATION
  Report Type: 
  Country: None (occurrence: None)
  Receive Date: 20071029
  Receipt Date: 20071015
  Transmission Date: 20080405
  Serious: Yes (Hospitalization, Other)
  Sender: FDA-Public Use
  Company Number: 1999001003-FJ

PATIENT
  Age: 18 Year
  Sex: Male
  Weight: 47 kg

DRUGS (13)
  1. PROGRAF [Suspect]
     Indication: RENAL TRANSPLANT
     Dosage: SEE IMAGE
     Route: 048
     Dates: start: 19970325, end: 19970325
  2. PROGRAF [Suspect]
     Indication: RENAL TRANSPLANT
     Dosage: SEE IMAGE
     Route: 048
     Dates: start: 19970326, end: 19970326
  3. PROGRAF [Suspect]
     Indication: RENAL TRANSPLANT
     Dosage: SEE IMAGE
     Route: 048
     Dates: start: 19970403, end: 19970423
  4. PROGRAF [Suspect]
     Indication: RENAL TRANSPLANT
     Dosage: SEE IMAGE
     Route: 048
     Dates: start: 19970424, end: 19970515
  5. PROGRAF [Suspect]
     Indication: RENAL TRANSPLANT
     Dosage: SEE IMAGE
     Route: 048
     Dates: end: 19971129
  6. PROGRAF [Suspect]
     Indication: RENAL TRANSPLANT
     Dosage: SEE IMAGE
     Route: 048
     Dates: start: 19970516
  7. PROGRAF [Suspect]
     Indication: RENAL TRANSPLANT
     Dosage: 0.1 MG/KG, IV NOS; 0.07 MG/KG, IV NOS; 0.06 MG/KG, IV NOS
     Route: 042
     Dates: start: 19970327, end: 19970327
  8. PROGRAF [Suspect]
     Indication: RENAL TRANSPLANT
     Dosage: 0.1 MG/KG, IV NOS; 0.07 MG/KG, IV NOS; 0.06 MG/KG, IV NOS
     Route: 042
     Dates: start: 19970328, end: 19970328
  9. PROGRAF [Suspect]
     Indication: RENAL TRANSPLANT
     Dosage: 0.1 MG/KG, IV NOS; 0.07 MG/KG, IV NOS; 0.06 MG/KG, IV NOS
     Route: 042
     Dates: start: 19970329, end: 19970402
  10. AZATHIOPRINE [Concomitant]
  11. METHYLPREDNISOLONE [Concomitant]
  12. PREDNISOLONE [Concomitant]
  13. ANTILYMPHOCYTE GLOBULIN (ANTILYMPHOCYTE IMMUNOGLOBULIN (HORSE)) FORMUL [Concomitant]

REACTIONS (4)
  - ANAEMIA [None]
  - BLOOD AMYLASE INCREASED [None]
  - BLOOD LACTATE DEHYDROGENASE INCREASED [None]
  - GASTRIC ULCER [None]
